FAERS Safety Report 10027738 (Version 1)
Quarter: 2014Q1

REPORT INFORMATION
  Report Type: Spontaneous
  Country: US (occurrence: US)
  Receive Date: 20140321
  Receipt Date: 20140321
  Transmission Date: 20141002
  Serious: No
  Sender: FDA-Public Use
  Company Number: US-MALLINCKRODT-T201304675

PATIENT
  Sex: Male
  Weight: 99.77 kg

DRUGS (1)
  1. METHADONE [Suspect]
     Indication: BACK PAIN
     Dosage: 10 MG, 60MG QD
     Route: 065
     Dates: start: 2002

REACTIONS (1)
  - Sleep apnoea syndrome [Unknown]
